FAERS Safety Report 8500598-8 (Version None)
Quarter: 2012Q3

REPORT INFORMATION
  Report Type: 
  Country: None (occurrence: None)
  Receive Date: 20120710
  Receipt Date: 20120629
  Transmission Date: 20120928
  Serious: Yes (Other)
  Sender: FDA-Public Use
  Company Number: JP-VERTEX PHARMACEUTICALS INC.-AE-2012-009805

PATIENT
  Age: 50 Year
  Sex: Male

DRUGS (6)
  1. TELAVIC (TELAPREVIR) [Suspect]
     Indication: HEPATITIS C
     Route: 048
     Dates: start: 20120508
  2. PEGINTERFERON ALFA-2B [Concomitant]
     Route: 058
     Dates: start: 20120508, end: 20120514
  3. RIBAVIRIN [Concomitant]
     Route: 048
     Dates: start: 20120508
  4. PEGINTERFERON ALFA-2B [Concomitant]
     Route: 058
     Dates: start: 20120515
  5. TALION [Concomitant]
     Route: 048
     Dates: start: 20120508
  6. PREDNISOLONE [Concomitant]
     Route: 048
     Dates: start: 20120511

REACTIONS (1)
  - ERYTHEMA MULTIFORME [None]
